FAERS Safety Report 13376616 (Version 3)
Quarter: 2018Q1

REPORT INFORMATION
  Report Type: Spontaneous
  Country: US (occurrence: US)
  Receive Date: 20170328
  Receipt Date: 20180129
  Transmission Date: 20180508
  Serious: No
  Sender: FDA-Public Use
  Company Number: US-LUNDBECK-DKLU2028091

PATIENT
  Age: 82 Year
  Sex: Male
  Weight: 84 kg

DRUGS (9)
  1. NORTHERA [Suspect]
     Active Substance: DROXIDOPA
     Route: 065
     Dates: end: 20170324
  2. METFORMIN [Concomitant]
     Active Substance: METFORMIN HYDROCHLORIDE
     Indication: GLUCOSE TOLERANCE IMPAIRED
     Route: 065
     Dates: start: 20170118
  3. NORTHERA [Suspect]
     Active Substance: DROXIDOPA
     Indication: ORTHOSTATIC HYPOTENSION
     Dosage: SCEDULE B; TITRATING
     Route: 065
     Dates: start: 20170310
  4. MIDODRINE [Concomitant]
     Active Substance: MIDODRINE
     Indication: ORTHOSTATIC HYPOTENSION
     Route: 065
     Dates: start: 20170127
  5. NORTHERA [Suspect]
     Active Substance: DROXIDOPA
     Route: 065
     Dates: start: 20170308
  6. ASPIRIN. [Concomitant]
     Active Substance: ASPIRIN
     Indication: ANTICOAGULANT THERAPY
     Route: 065
     Dates: start: 20160406
  7. NAMZARIC [Concomitant]
     Active Substance: DONEPEZIL HYDROCHLORIDE\MEMANTINE HYDROCHLORIDE
     Indication: DEMENTIA ALZHEIMER^S TYPE
     Dosage: 28/10
     Route: 065
     Dates: start: 20161025
  8. SINEMET [Concomitant]
     Active Substance: CARBIDOPA\LEVODOPA
     Indication: PARKINSON^S DISEASE
     Dosage: 25/100
     Route: 065
     Dates: start: 20160803
  9. SIMVASTATIN. [Concomitant]
     Active Substance: SIMVASTATIN
     Indication: HYPERTENSION
     Route: 065
     Dates: start: 20160406

REACTIONS (8)
  - Malaise [Unknown]
  - Anal incontinence [Unknown]
  - Fatigue [Unknown]
  - Drug ineffective [Unknown]
  - Lethargy [Unknown]
  - Disorientation [Unknown]
  - Pollakiuria [Unknown]
  - Dizziness [Unknown]

NARRATIVE: CASE EVENT DATE: 20170324
